FAERS Safety Report 20866755 (Version 1)
Quarter: 2022Q2

REPORT INFORMATION
  Report Type: Spontaneous
  Country: US (occurrence: US)
  Receive Date: 20220524
  Receipt Date: 20220524
  Transmission Date: 20220721
  Serious: Yes (Other)
  Sender: FDA-Public Use
  Company Number: US-Blueprint Medicines Corporation-SP-US-2022-001544

PATIENT
  Sex: Female

DRUGS (2)
  1. AYVAKIT [Suspect]
     Active Substance: AVAPRITINIB
     Indication: Systemic mastocytosis
     Dosage: TAKE 1 TABLET (100 MG TOTAL) BY MOUTH EVERY OTHER DAY. ALTERNATING WITH 200 MG TAB EVERY OTHER DAY
     Route: 048
     Dates: start: 20211001
  2. AYVAKIT [Suspect]
     Active Substance: AVAPRITINIB
     Dosage: TAKE 1 TABLET (100 MG TOTAL) BY MOUTH EVERY OTHER DAY. ALTERNATING WITH 200 MG TAB EVERY OTHER DAY
     Route: 048
     Dates: start: 20211001

REACTIONS (10)
  - Poor peripheral circulation [Not Recovered/Not Resolved]
  - Skin cancer [Not Recovered/Not Resolved]
  - Peripheral arterial occlusive disease [Not Recovered/Not Resolved]
  - Vomiting [Not Recovered/Not Resolved]
  - Nausea [Not Recovered/Not Resolved]
  - Peripheral swelling [Not Recovered/Not Resolved]
  - Paraesthesia [Not Recovered/Not Resolved]
  - Erythema [Not Recovered/Not Resolved]
  - Carpal tunnel syndrome [Not Recovered/Not Resolved]
  - Off label use [Unknown]
